FAERS Safety Report 7011346-5 (Version None)
Quarter: 2010Q3

REPORT INFORMATION
  Report Type: 
  Country: None (occurrence: None)
  Receive Date: 20100922
  Receipt Date: 20100922
  Transmission Date: 20110219
  Serious: Yes (Other)
  Sender: FDA-Public Use
  Company Number: None

PATIENT
  Age: 68 Year
  Sex: Female
  Weight: 59.8748 kg

DRUGS (1)
  1. CEFUROXIME [Suspect]
     Indication: CHEST DISCOMFORT
     Dosage: ONE PILL, ONE TIME 1 TABLET BY MOUTH 2 X DAY DENTAL
     Route: 004
     Dates: start: 20100810, end: 20100810

REACTIONS (4)
  - NAUSEA [None]
  - PRODUCT SOLUBILITY ABNORMAL [None]
  - PRODUCT TASTE ABNORMAL [None]
  - VOMITING [None]
